FAERS Safety Report 4531135-0 (Version None)
Quarter: 2004Q4

REPORT INFORMATION
  Report Type: 
  Country: None (occurrence: None)
  Receive Date: 20041130
  Receipt Date: 20040719
  Transmission Date: 20050328
  Serious: Yes (Disabling, Other)
  Sender: FDA-Public Use
  Company Number: WAES 0407USA01586

PATIENT
  Age: 64 Year
  Sex: Female
  Weight: 62.1428 kg

DRUGS (5)
  1. FOSAMAX [Suspect]
     Indication: OSTEOPOROSIS
     Dosage: 70MG/WKY/PO
     Route: 048
     Dates: end: 20040607
  2. BAYCOL UNK [Suspect]
     Dates: start: 20010101
  3. SYNTHROID [Concomitant]
  4. CALCIUM [Concomitant]
  5. NIACIN [Concomitant]

REACTIONS (6)
  - ADVERSE EVENT [None]
  - DISCOMFORT [None]
  - DYSPHAGIA [None]
  - MUSCLE CRAMP [None]
  - MUSCULAR WEAKNESS [None]
  - OESOPHAGITIS [None]
